FAERS Safety Report 22094404 (Version 3)
Quarter: 2023Q2

REPORT INFORMATION
  Report Type: Spontaneous
  Country: US (occurrence: US)
  Receive Date: 20230314
  Receipt Date: 20230613
  Transmission Date: 20230721
  Serious: Yes (Other)
  Sender: FDA-Public Use
  Company Number: US-ALLERGAN-2306862US

PATIENT
  Age: 41 Year
  Sex: Female
  Weight: 102 kg

DRUGS (3)
  1. OZURDEX [Suspect]
     Active Substance: DEXAMETHASONE
     Indication: Macular oedema
     Dosage: TIME INTERVAL: AS NECESSARY: RIGHT EYE
     Route: 031
     Dates: start: 20230302, end: 20230302
  2. OZURDEX [Suspect]
     Active Substance: DEXAMETHASONE
     Dosage: TIME INTERVAL: AS NECESSARY: START DATE TEXT: OCTOBER OR SEPTEMBER OF 2022
     Route: 031
     Dates: start: 2022, end: 2022
  3. HUMALOG [Concomitant]
     Active Substance: INSULIN LISPRO
     Indication: Type 1 diabetes mellitus

REACTIONS (4)
  - Blindness [Not Recovered/Not Resolved]
  - Cataract [Recovering/Resolving]
  - Vitreous floaters [Not Recovered/Not Resolved]
  - Eye pain [Not Recovered/Not Resolved]

NARRATIVE: CASE EVENT DATE: 20230302
